FAERS Safety Report 6312703-2 (Version None)
Quarter: 2009Q3

REPORT INFORMATION
  Report Type: 
  Country: None (occurrence: None)
  Receive Date: 20090818
  Receipt Date: 20090810
  Transmission Date: 20100115
  Serious: Yes (Hospitalization)
  Sender: FDA-Public Use
  Company Number: GB-ELI_LILLY_AND_COMPANY-GB200908002059

PATIENT
  Age: 67 Year
  Sex: Female
  Weight: 80 kg

DRUGS (10)
  1. BYETTA [Suspect]
     Indication: DIABETES MELLITUS INADEQUATE CONTROL
     Dosage: 5 UG, 2/D
     Route: 058
     Dates: start: 20090710, end: 20090713
  2. AMLODIPINE [Concomitant]
     Dosage: 5 MG, UNKNOWN
     Route: 065
  3. ASPIRIN [Concomitant]
     Dosage: 75 MG, UNKNOWN
     Route: 065
  4. ATENOLOL [Concomitant]
     Dosage: 50 MG, UNKNOWN
     Route: 065
  5. BENDROFLUMETHIAZIDE [Concomitant]
     Dosage: 5 MG, UNKNOWN
     Route: 065
  6. METFORMIN [Concomitant]
     Dosage: 850 MG, 3/D
     Route: 065
  7. NOVOMIX                            /01475801/ [Concomitant]
     Dosage: UNK, UNKNOWN
     Route: 065
  8. PAROXETINE HCL [Concomitant]
     Dosage: 20 MG, UNKNOWN
     Route: 065
  9. RAMIPRIL [Concomitant]
     Dosage: 10 MG, UNKNOWN
     Route: 065
  10. SIMVASTATIN [Concomitant]
     Dosage: 80 MG, UNKNOWN
     Route: 065

REACTIONS (3)
  - MEDICATION ERROR [None]
  - PANCREATITIS [None]
  - VOMITING [None]
